FAERS Safety Report 7803415-4 (Version None)
Quarter: 2011Q4

REPORT INFORMATION
  Report Type: 
  Country: None (occurrence: None)
  Receive Date: 20111007
  Receipt Date: 20110120
  Transmission Date: 20120403
  Serious: No
  Sender: FDA-Public Use
  Company Number: US-BAYER-2011-007935

PATIENT
  Age: 78 Year
  Sex: Female

DRUGS (1)
  1. CIPRO [Suspect]
     Indication: URINARY TRACT INFECTION
     Dosage: 500 MG, QD
     Route: 048
     Dates: start: 20110113, end: 20110119

REACTIONS (7)
  - DIARRHOEA [None]
  - CHROMATURIA [None]
  - CONTUSION [None]
  - OEDEMA PERIPHERAL [None]
  - CONFUSIONAL STATE [None]
  - RASH [None]
  - AGITATION [None]
